FAERS Safety Report 9723757 (Version 2)
Quarter: 2013Q4

REPORT INFORMATION
  Report Type: Report from Study
  Country: DE (occurrence: DE)
  Receive Date: 20131202
  Receipt Date: 20131218
  Transmission Date: 20140711
  Serious: Yes (Hospitalization, Other)
  Sender: FDA-Public Use
  Company Number: DE-SA-2013SA122975

PATIENT
  Age: 77 Year
  Sex: Male
  Weight: 75 kg

DRUGS (17)
  1. MULTAQ [Suspect]
     Indication: ATRIAL FIBRILLATION
     Route: 065
     Dates: start: 20120601, end: 20120919
  2. DILTIAZEM [Concomitant]
     Dates: start: 20050316, end: 20130605
  3. RAMIPRIL [Concomitant]
  4. ISOSORBIDE DINITRATE [Concomitant]
  5. THEOPHYLLINE [Concomitant]
  6. ALLOPURINOL [Concomitant]
  7. FUROSEMIDE [Concomitant]
  8. PANTOPRAZOLE SODIUM [Concomitant]
  9. PENTOXIFYLLINE [Concomitant]
  10. TIOTROPIUM [Concomitant]
  11. FLUTICASONE [Concomitant]
  12. SALMETEROL [Concomitant]
  13. MESALAZINE [Concomitant]
  14. ALL OTHER THERAPEUTIC PRODUCTS [Concomitant]
     Dates: start: 200509
  15. DIGITALIS GLYCOSIDES [Concomitant]
     Dates: start: 200503, end: 200509
  16. PLATELET AGGREGATION INHIBITORS [Concomitant]
     Indication: THROMBOSIS PROPHYLAXIS
  17. VIT K ANTAGONISTS [Concomitant]
     Dates: start: 20120926, end: 20121004

REACTIONS (3)
  - Cardiac failure [Unknown]
  - Atrial fibrillation [Unknown]
  - Adverse event [Unknown]
